FAERS Safety Report 6232361-5 (Version None)
Quarter: 2009Q2

REPORT INFORMATION
  Report Type: 
  Country: None (occurrence: None)
  Receive Date: 20090617
  Receipt Date: 20090605
  Transmission Date: 20091009
  Serious: Yes (Other)
  Sender: FDA-Public Use
  Company Number: PHEH2009US05806

PATIENT
  Sex: Female

DRUGS (5)
  1. GLEEVEC [Suspect]
     Dosage: UNK
     Dates: start: 20080801
  2. STEROIDS NOS [Suspect]
  3. METOPROLOL TARTRATE [Concomitant]
  4. NEUPOGEN [Concomitant]
  5. PROCRIT                            /00909301/ [Concomitant]

REACTIONS (2)
  - ABASIA [None]
  - ERYTHEMA [None]
